FAERS Safety Report 8216950-4 (Version None)
Quarter: 2012Q1

REPORT INFORMATION
  Report Type: 
  Country: None (occurrence: None)
  Receive Date: 20120319
  Receipt Date: 20120305
  Transmission Date: 20120608
  Serious: Yes (Hospitalization)
  Sender: FDA-Public Use
  Company Number: GB-BRISTOL-MYERS SQUIBB COMPANY-16443699

PATIENT
  Age: 34 Year
  Sex: Female

DRUGS (4)
  1. INSULIN [Suspect]
     Indication: GLUCOSE TOLERANCE IMPAIRED IN PREGNANCY
  2. ENOXAPARIN [Concomitant]
     Indication: PROPHYLAXIS
  3. ASPIRIN [Concomitant]
     Indication: PROPHYLAXIS
  4. METFORMIN HCL [Suspect]
     Indication: GLUCOSE TOLERANCE IMPAIRED IN PREGNANCY

REACTIONS (5)
  - FALL [None]
  - UTERINE RUPTURE [None]
  - PREGNANCY [None]
  - ABDOMINAL PAIN [None]
  - URINARY TRACT INFECTION [None]
